FAERS Safety Report 23565789 (Version 1)
Quarter: 2024Q1

REPORT INFORMATION
  Report Type: Spontaneous
  Country: US (occurrence: None)
  Receive Date: 20240224
  Receipt Date: 20240224
  Transmission Date: 20240410
  Serious: No
  Sender: FDA-Public Use
  Company Number: None

PATIENT
  Age: 74 Year
  Sex: Male
  Weight: 168.3 kg

DRUGS (1)
  1. TESTOSTERONE [Suspect]
     Active Substance: TESTOSTERONE
     Indication: Weight decreased
     Dosage: OTHER QUANTITY : 4 PUMP;?
     Route: 061

REACTIONS (1)
  - Breast atrophy [None]
